FAERS Safety Report 10698726 (Version 2)
Quarter: 2015Q2

REPORT INFORMATION
  Report Type: Spontaneous
  Country: US (occurrence: US)
  Receive Date: 20150108
  Receipt Date: 20150416
  Transmission Date: 20150821
  Serious: No
  Sender: FDA-Public Use
  Company Number: US-GLAXOSMITHKLINE-US2014GSK046333

PATIENT
  Sex: Female
  Weight: 196 kg

DRUGS (13)
  1. BENLYSTA [Suspect]
     Active Substance: BELIMUMAB
     Indication: SYSTEMIC LUPUS ERYTHEMATOSUS
     Dosage: 10 MG/KG, CYC, MONTHLY
     Dates: start: 20140326, end: 20141024
  2. BENLYSTA [Suspect]
     Active Substance: BELIMUMAB
     Dosage: UNK
  3. BENLYSTA [Suspect]
     Active Substance: BELIMUMAB
     Dosage: UNK
  4. BENLYSTA [Suspect]
     Active Substance: BELIMUMAB
     Dosage: UNK
  5. TYLENOL [Concomitant]
     Active Substance: ACETAMINOPHEN
     Dosage: 1 G, U
     Route: 048
  6. BENLYSTA [Suspect]
     Active Substance: BELIMUMAB
     Dosage: UNK
  7. BENLYSTA [Suspect]
     Active Substance: BELIMUMAB
     Dosage: UNK
  8. BENLYSTA [Suspect]
     Active Substance: BELIMUMAB
     Dosage: UNK
  9. SOLU-CORTEF [Concomitant]
     Active Substance: HYDROCORTISONE SODIUM SUCCINATE
     Dosage: 100 MG, U
     Route: 042
  10. BENADRYL [Concomitant]
     Active Substance: DIPHENHYDRAMINE HYDROCHLORIDE
     Dosage: 25 MG, U
     Route: 048
  11. BENLYSTA [Suspect]
     Active Substance: BELIMUMAB
     Dosage: UNK
  12. BENLYSTA [Suspect]
     Active Substance: BELIMUMAB
     Dosage: UNK
  13. BENLYSTA [Suspect]
     Active Substance: BELIMUMAB
     Dosage: UNK

REACTIONS (1)
  - Vision blurred [Recovered/Resolved]
